FAERS Safety Report 5908430-3 (Version None)
Quarter: 2008Q4

REPORT INFORMATION
  Report Type: 
  Country: None (occurrence: None)
  Receive Date: 20081006
  Receipt Date: 20080925
  Transmission Date: 20090506
  Serious: Yes (Other)
  Sender: FDA-Public Use
  Company Number: US-ROCHE-588262

PATIENT
  Sex: Female
  Weight: 86.6 kg

DRUGS (2)
  1. CAPECITABINE [Suspect]
     Indication: BREAST CANCER
     Route: 065
     Dates: start: 20070417
  2. CAPECITABINE [Suspect]
     Dosage: DOSE REPORTED AS: 1 DAILY (LOWERED DOSAGE)
     Route: 065

REACTIONS (1)
  - DISEASE PROGRESSION [None]
